FAERS Safety Report 14199462 (Version 1)
Quarter: 2017Q4

REPORT INFORMATION
  Report Type: Report from Study
  Country: BR (occurrence: BR)
  Receive Date: 20171117
  Receipt Date: 20171117
  Transmission Date: 20180321
  Serious: Yes (Other)
  Sender: FDA-Public Use
  Company Number: BR-ELI_LILLY_AND_COMPANY-BR201710012122

PATIENT
  Age: 47 Year
  Sex: Female

DRUGS (5)
  1. CETUXIMAB. [Suspect]
     Active Substance: CETUXIMAB
     Indication: HEAD AND NECK CANCER
     Dosage: 680 MG, WEEKLY (1/W)
     Route: 042
     Dates: start: 20171002
  2. CETUXIMAB. [Suspect]
     Active Substance: CETUXIMAB
     Dosage: 6 VIALS 100MG VIAL AMPOULE 20ML
     Route: 042
     Dates: start: 20171016
  3. CETUXIMAB. [Suspect]
     Active Substance: CETUXIMAB
     Dosage: 680 MG, WEEKLY (1/W)
     Route: 042
     Dates: start: 20171009
  4. CETUXIMAB. [Suspect]
     Active Substance: CETUXIMAB
     Dosage: 6 VIALS 100MG VIAL AMPOULE 20ML
     Route: 042
     Dates: start: 20171023, end: 20171030
  5. DRAMAMINE [Concomitant]
     Active Substance: DIMENHYDRINATE
     Indication: NAUSEA
     Dosage: UNK

REACTIONS (7)
  - Skin reaction [Not Recovered/Not Resolved]
  - Stomatitis [Not Recovered/Not Resolved]
  - Off label use [Unknown]
  - Skin necrosis [Unknown]
  - Gingival bleeding [Unknown]
  - Oral contusion [Unknown]
  - Gingival discomfort [Unknown]

NARRATIVE: CASE EVENT DATE: 2017
